FAERS Safety Report 23333910 (Version 1)
Quarter: 2023Q4

REPORT INFORMATION
  Report Type: Spontaneous
  Country: TR (occurrence: TR)
  Receive Date: 20231223
  Receipt Date: 20231223
  Transmission Date: 20240109
  Serious: Yes (Other)
  Sender: FDA-Public Use
  Company Number: TR-ABBVIE-5553608

PATIENT
  Age: 32 Year
  Sex: Male

DRUGS (2)
  1. BOTULINUM TOXIN TYPE A [Suspect]
     Active Substance: BOTULINUM TOXIN TYPE A
     Indication: Product used for unknown indication
     Dosage: TIME INTERVAL: AS NECESSARY
     Route: 065
  2. BOTULINUM TOXIN TYPE A [Suspect]
     Active Substance: BOTULINUM TOXIN TYPE A
     Indication: Product used for unknown indication
     Dosage: TIME INTERVAL: AS NECESSARY
     Route: 065

REACTIONS (8)
  - Botulism [Unknown]
  - Diplopia [Unknown]
  - Vision blurred [Unknown]
  - Eyelid ptosis [Unknown]
  - Dysphagia [Unknown]
  - Areflexia [Unknown]
  - Muscular weakness [Unknown]
  - Cutaneous symptom [Unknown]
